FAERS Safety Report 7200623-0 (Version None)
Quarter: 2010Q4

REPORT INFORMATION
  Report Type: 
  Country: None (occurrence: None)
  Receive Date: 20101228
  Receipt Date: 20101220
  Transmission Date: 20110411
  Serious: Yes (Death, Hospitalization)
  Sender: FDA-Public Use
  Company Number: CA-JNJFOC-20100600476

PATIENT
  Age: 23 Year
  Sex: Male

DRUGS (2)
  1. REMICADE [Suspect]
     Indication: CROHN'S DISEASE
     Route: 042
  2. MERCAPTOPURINE [Concomitant]

REACTIONS (2)
  - DEATH [None]
  - HEPATOSPLENIC T-CELL LYMPHOMA [None]
